FAERS Safety Report 6946421-4 (Version None)
Quarter: 2010Q3

REPORT INFORMATION
  Report Type: 
  Country: None (occurrence: None)
  Receive Date: 20100824
  Receipt Date: 20100816
  Transmission Date: 20110219
  Serious: Yes (Death, Hospitalization)
  Sender: FDA-Public Use
  Company Number: 2010US003307

PATIENT
  Age: 23 Year
  Sex: Female

DRUGS (7)
  1. PROGRAF [Suspect]
     Indication: BONE MARROW TRANSPLANT
     Dosage: 0.5 MG, QOD, ORAL
     Route: 048
     Dates: start: 20080601
  2. ACYCLOVIR [Concomitant]
  3. ALLOPURINOL [Concomitant]
  4. HYDROXYUREA [Concomitant]
  5. METHADONE HCL [Concomitant]
  6. PROTONIX [Concomitant]
  7. LORAZEPAM [Concomitant]

REACTIONS (1)
  - DEATH [None]
